FAERS Safety Report 6824873-8 (Version None)
Quarter: 2010Q3

REPORT INFORMATION
  Report Type: 
  Country: None (occurrence: None)
  Receive Date: 20100708
  Receipt Date: 20061221
  Transmission Date: 20110219
  Serious: No
  Sender: FDA-Public Use
  Company Number: US-PFIZER INC-2007001046

PATIENT
  Sex: Female

DRUGS (5)
  1. CHANTIX [Suspect]
  2. CYMBALTA [Concomitant]
  3. PROVIGIL [Concomitant]
  4. INTERFERON [Concomitant]
  5. IBUPROFEN [Concomitant]

REACTIONS (3)
  - CONSTIPATION [None]
  - DEPRESSION [None]
  - EPISTAXIS [None]
